FAERS Safety Report 9143373 (Version 2)
Quarter: 2013Q4

REPORT INFORMATION
  Report Type: Spontaneous
  Country: FR (occurrence: FR)
  Receive Date: 20130306
  Receipt Date: 20131209
  Transmission Date: 20140711
  Serious: Yes (Hospitalization)
  Sender: FDA-Public Use
  Company Number: FR-PFIZER INC-2013071429

PATIENT
  Age: 70 Year
  Sex: Female

DRUGS (7)
  1. CELEBREX [Suspect]
     Indication: PAIN
     Dosage: UNK
     Route: 048
     Dates: start: 20130121, end: 20130201
  2. TOPALGIC [Concomitant]
     Dosage: UNK
  3. MOPRAL [Concomitant]
     Dosage: UNK
  4. OROCAL VITAMIN D [Concomitant]
     Dosage: UNK
  5. VOLTARENE [Concomitant]
     Dosage: UNK
  6. LIPANTHYL [Concomitant]
     Dosage: UNK
  7. ZELITREX [Concomitant]
     Indication: ORAL HERPES
     Dosage: UNK

REACTIONS (9)
  - Oedema [Recovered/Resolved]
  - Nephrotic syndrome [Recovered/Resolved]
  - Weight increased [Unknown]
  - Asthenia [Unknown]
  - Decreased appetite [Unknown]
  - Polyuria [Unknown]
  - Chromaturia [Unknown]
  - Cough [Unknown]
  - Dyspnoea exertional [Unknown]
